FAERS Safety Report 18022553 (Version 1)
Quarter: 2020Q3

REPORT INFORMATION
  Report Type: Spontaneous
  Country: CA (occurrence: CA)
  Receive Date: 20200715
  Receipt Date: 20200715
  Transmission Date: 20201103
  Serious: Yes (Other)
  Sender: FDA-Public Use
  Company Number: CA-ACCORD-189267

PATIENT
  Sex: Female

DRUGS (14)
  1. METHOTREXATE. [Suspect]
     Active Substance: METHOTREXATE
     Indication: PRODUCT USED FOR UNKNOWN INDICATION
  2. AMITRIPTYLINE [Concomitant]
     Active Substance: AMITRIPTYLINE
     Route: 048
  3. CYANOCOBALAMIN. [Concomitant]
     Active Substance: CYANOCOBALAMIN
     Dosage: 1 EVERY 3 WEEKS
  4. OMEGA 3,6,9 [Concomitant]
     Route: 048
  5. ERGOCALCIFEROL. [Concomitant]
     Active Substance: ERGOCALCIFEROL
     Route: 048
  6. HYDROCHLOROTHIAZIDE. [Concomitant]
     Active Substance: HYDROCHLOROTHIAZIDE
     Dosage: EVERY 1 DAY
     Route: 048
  7. ROSUVASTATIN SANDOZ [Concomitant]
     Active Substance: ROSUVASTATIN CALCIUM
     Dosage: EVERY 1 DAYS
  8. SERTRALINE [Concomitant]
     Active Substance: SERTRALINE HYDROCHLORIDE
     Dosage: EVERY 1 DAYS
     Route: 048
  9. TYLENOL [Concomitant]
     Active Substance: ACETAMINOPHEN
     Dosage: 3 EVERY 1 DAYS
  10. RABEPRAZOLE [Concomitant]
     Active Substance: RABEPRAZOLE
     Dosage: 1 EVERY 1 DAYS
     Route: 048
  11. CODEINE PHOSPHATE/PARACETAMOL [Concomitant]
     Active Substance: ACETAMINOPHEN\CODEINE PHOSPHATE
  12. CALCIUM ACETATE. [Concomitant]
     Active Substance: CALCIUM ACETATE
     Dosage: EVERY 1 DAYS
     Route: 048
  13. LEFLUNOMIDE. [Concomitant]
     Active Substance: LEFLUNOMIDE
     Dosage: 1 EVERY 1 DAYS
     Route: 048
  14. CANNABIDIOL [Concomitant]
     Active Substance: CANNABIDIOL
     Route: 048

REACTIONS (6)
  - Malaise [Unknown]
  - Arthralgia [Unknown]
  - Back pain [Unknown]
  - Cough [Unknown]
  - Alopecia [Unknown]
  - Bronchiectasis [Unknown]
